FAERS Safety Report 18318902 (Version 1)
Quarter: 2020Q3

REPORT INFORMATION
  Report Type: Spontaneous
  Country: US (occurrence: US)
  Receive Date: 20200925
  Receipt Date: 20200925
  Transmission Date: 20201103
  Serious: Yes (Hospitalization)
  Sender: FDA-Public Use
  Company Number: None

PATIENT
  Age: 71 Year
  Sex: Male

DRUGS (13)
  1. IMATINIB MES 400MG TAB [Suspect]
     Active Substance: IMATINIB MESYLATE
     Indication: GASTROINTESTINAL STROMAL TUMOUR
     Dosage: ?          OTHER DOSE:2 TABS;?
     Route: 048
     Dates: start: 20200224
  2. ELIQUIS [Concomitant]
     Active Substance: APIXABAN
  3. FINASTERIDE. [Concomitant]
     Active Substance: FINASTERIDE
  4. HYDROCHLOROT [Concomitant]
     Active Substance: HYDROCHLOROTHIAZIDE
  5. ZOCOR [Concomitant]
     Active Substance: SIMVASTATIN
  6. METAXALONE. [Concomitant]
     Active Substance: METAXALONE
  7. LOPRESSOR [Concomitant]
     Active Substance: METOPROLOL TARTRATE
  8. NYSTATIN. [Concomitant]
     Active Substance: NYSTATIN
  9. COLACE [Concomitant]
     Active Substance: DOCUSATE SODIUM
  10. LOSARTAN POT [Concomitant]
     Active Substance: LOSARTAN POTASSIUM
  11. POTASSIUM CHLORIDE. [Concomitant]
     Active Substance: POTASSIUM CHLORIDE
  12. DILTIAZEM ER [Concomitant]
     Active Substance: DILTIAZEM
  13. MAGNESIUM CL [Concomitant]

REACTIONS (2)
  - Therapy interrupted [None]
  - Surgery [None]

NARRATIVE: CASE EVENT DATE: 20200923
